FAERS Safety Report 7620639-X (Version None)
Quarter: 2011Q3

REPORT INFORMATION
  Report Type: 
  Country: None (occurrence: None)
  Receive Date: 20110719
  Receipt Date: 20110627
  Transmission Date: 20111222
  Serious: Yes (Death)
  Sender: FDA-Public Use
  Company Number: US-GLAXOSMITHKLINE-A0806791A

PATIENT
  Age: 61 Year
  Sex: Female
  Weight: 76.8 kg

DRUGS (4)
  1. LOZOL [Concomitant]
  2. LIPITOR [Concomitant]
  3. AVANDIA [Suspect]
     Indication: HYPERTENSION
     Dosage: 4MG PER DAY
     Route: 048
     Dates: start: 20050101, end: 20070101
  4. METFORMIN HCL [Concomitant]

REACTIONS (4)
  - CARDIAC ARREST [None]
  - HAEMORRHAGIC STROKE [None]
  - CARDIAC FAILURE CONGESTIVE [None]
  - DEATH [None]
